FAERS Safety Report 19199689 (Version 1)
Quarter: 2021Q2

REPORT INFORMATION
  Report Type: Spontaneous
  Country: CA (occurrence: CA)
  Receive Date: 20210430
  Receipt Date: 20210430
  Transmission Date: 20210717
  Serious: Yes (Death, Life-Threatening, Hospitalization)
  Sender: FDA-Public Use
  Company Number: CA-ORION CORPORATION ORION PHARMA-21_00014187

PATIENT
  Age: 91 Year
  Sex: Male
  Weight: 58 kg

DRUGS (6)
  1. SKYRIZI [Concomitant]
     Active Substance: RISANKIZUMAB-RZAA
     Route: 065
  2. FOLVITE [FOLIC ACID] [Concomitant]
     Route: 065
  3. METHOTREXATE (TRADE NAME UNKNOWN) [Suspect]
     Active Substance: METHOTREXATE
     Indication: PRODUCT USED FOR UNKNOWN INDICATION
     Route: 048
  4. DOVONEX [Concomitant]
     Active Substance: CALCIPOTRIENE
     Route: 065
  5. FUCIDIN [FUSIDIC ACID] [Concomitant]
     Active Substance: FUSIDIC ACID
     Route: 065
  6. LAX?A?DAY [Concomitant]
     Active Substance: POLYETHYLENE GLYCOL 3350
     Route: 065

REACTIONS (1)
  - Pancytopenia [Fatal]
